FAERS Safety Report 7083133-3 (Version None)
Quarter: 2010Q4

REPORT INFORMATION
  Report Type: 
  Country: None (occurrence: None)
  Receive Date: 20101027
  Receipt Date: 20101012
  Transmission Date: 20110411
  Serious: Yes (Hospitalization)
  Sender: FDA-Public Use
  Company Number: 2010-3584

PATIENT
  Age: 71 Year
  Sex: Female

DRUGS (1)
  1. APO-GO (APOMORPHINE HYDROCHLORIDE) (APOMORPHINE HYDROCHLORIDE) [Suspect]
     Indication: PRODUCT USED FOR UNKNOWN INDICATION
     Dosage: 12.5 HOURS/DAY, SUBCUTANEOUS
     Route: 058
     Dates: start: 20100428, end: 20100914

REACTIONS (3)
  - DIZZINESS [None]
  - NAUSEA [None]
  - NODULE [None]
